FAERS Safety Report 26182506 (Version 2)
Quarter: 2025Q4

REPORT INFORMATION
  Report Type: Spontaneous
  Country: US (occurrence: US)
  Receive Date: 20251221
  Receipt Date: 20251222
  Transmission Date: 20260118
  Serious: No
  Sender: ABBVIE
  Company Number: US-ABBVIE-6596129

PATIENT
  Sex: Female

DRUGS (2)
  1. RESTASIS [Suspect]
     Active Substance: CYCLOSPORINE
     Indication: Dry eye
     Dosage: UNKNOWN
     Route: 047
  2. MIEBO [Suspect]
     Active Substance: PERFLUOROHEXYLOCTANE
     Indication: Product used for unknown indication
     Route: 065

REACTIONS (6)
  - Product quality issue [Not Recovered/Not Resolved]
  - Multiple use of single-use product [Unknown]
  - Eye irritation [Unknown]
  - Ocular hyperaemia [Unknown]
  - Erythema of eyelid [Unknown]
  - Eye ulcer [Unknown]
